FAERS Safety Report 5279698-4 (Version None)
Quarter: 2007Q1

REPORT INFORMATION
  Report Type: 
  Country: None (occurrence: None)
  Receive Date: 20070323
  Receipt Date: 20070312
  Transmission Date: 20070707
  Serious: Yes (Hospitalization)
  Sender: FDA-Public Use
  Company Number: S07-USA-01265-01

PATIENT
  Age: 51 Year
  Sex: Female

DRUGS (5)
  1. LEXAPRO [Suspect]
     Indication: DEPRESSION
     Dosage: 10 MG QD PO
     Route: 048
     Dates: start: 20070117
  2. LEXAPRO [Suspect]
     Indication: DEPRESSION
     Dosage: 5 MG QD PO
     Route: 048
     Dates: start: 20070110, end: 20070116
  3. PERCOCET [Concomitant]
  4. LISINOPRIL AND HYDROCHLOROTHIAZIDE [Concomitant]
  5. SPIRONOLACTONE [Concomitant]

REACTIONS (3)
  - APPENDICITIS [None]
  - ELECTROCARDIOGRAM POOR R-WAVE PROGRESSION [None]
  - MYOCARDIAL INFARCTION [None]
